FAERS Safety Report 23221767 (Version 1)
Quarter: 2023Q4

REPORT INFORMATION
  Report Type: Spontaneous
  Country: CN (occurrence: CN)
  Receive Date: 20231123
  Receipt Date: 20231123
  Transmission Date: 20240109
  Serious: Yes (Disabling, Other)
  Sender: FDA-Public Use
  Company Number: CN-TEVA-2023-CN-2948819

PATIENT
  Age: 53 Year
  Sex: Male
  Weight: 85.56 kg

DRUGS (8)
  1. BENDAMUSTINE [Suspect]
     Active Substance: BENDAMUSTINE
     Indication: Mantle cell lymphoma
     Dosage: 185 MILLIGRAM DAILY;
     Route: 041
     Dates: start: 20231107, end: 20231108
  2. RITUXIMAB [Suspect]
     Active Substance: RITUXIMAB
     Indication: Mantle cell lymphoma
     Dosage: 100 MILLIGRAM DAILY; END DATE: 06-NOV-2023
     Route: 041
     Dates: start: 20231106
  3. RITUXIMAB [Suspect]
     Active Substance: RITUXIMAB
     Dosage: 500 MILLIGRAM DAILY; END DATE: 06-NOV-2023
     Route: 041
     Dates: start: 20231106
  4. RITUXIMAB [Suspect]
     Active Substance: RITUXIMAB
     Dosage: 200 MILLIGRAM DAILY; END DATE: 06-NOV-2023
     Route: 041
     Dates: start: 20231106
  5. SODIUM CHLORIDE [Concomitant]
     Active Substance: SODIUM CHLORIDE
     Indication: Mantle cell lymphoma
     Dosage: 100 ML DAILY; END DATE: 06-NOV-2023
     Route: 041
     Dates: start: 20231106
  6. SODIUM CHLORIDE [Concomitant]
     Active Substance: SODIUM CHLORIDE
     Dosage: 500 ML DAILY; END DATE: 06-NOV-2023
     Route: 041
     Dates: start: 20231106
  7. SODIUM CHLORIDE [Concomitant]
     Active Substance: SODIUM CHLORIDE
     Dosage: 200 ML DAILY; END DATE: 06-NOV-2023
     Route: 041
     Dates: start: 20231106
  8. SODIUM CHLORIDE [Concomitant]
     Active Substance: SODIUM CHLORIDE
     Dosage: 500 ML DAILY;
     Route: 041
     Dates: start: 20231107, end: 20231108

REACTIONS (2)
  - White blood cell count decreased [Recovering/Resolving]
  - Granulocytopenia [Recovering/Resolving]

NARRATIVE: CASE EVENT DATE: 20231109
